FAERS Safety Report 5046937-4 (Version None)
Quarter: 2006Q2

REPORT INFORMATION
  Report Type: 
  Country: None (occurrence: None)
  Receive Date: 20060630
  Receipt Date: 20060622
  Transmission Date: 20061013
  Serious: Yes (Other)
  Sender: FDA-Public Use
  Company Number: 2006079398

PATIENT
  Sex: Male

DRUGS (1)
  1. ARTROTEC (DICLOFENAC SODIUM, MISOPROSTOL) [Suspect]
     Dosage: ORAL
     Route: 048

REACTIONS (3)
  - ARTHROPATHY [None]
  - BLOOD URINE PRESENT [None]
  - PROSTATE CANCER [None]
